FAERS Safety Report 23355127 (Version 1)
Quarter: 2024Q1

REPORT INFORMATION
  Report Type: Spontaneous
  Country: CN (occurrence: CN)
  Receive Date: 20240102
  Receipt Date: 20240102
  Transmission Date: 20240410
  Serious: Yes (Other)
  Sender: FDA-Public Use
  Company Number: CN-ABBVIE-5565424

PATIENT
  Age: 59 Year
  Sex: Male
  Weight: 68 kg

DRUGS (4)
  1. VENETOCLAX [Suspect]
     Active Substance: VENETOCLAX
     Indication: Acute leukaemia
     Dosage: 400 MILLIGRAM
     Route: 048
     Dates: start: 20230518, end: 20230531
  2. CYTARABINE [Suspect]
     Active Substance: CYTARABINE
     Indication: Acute leukaemia
     Dosage: 35 MILLIGRAM
     Route: 065
     Dates: start: 20230520, end: 20230526
  3. SOMATOSTATIN [Suspect]
     Active Substance: SOMATOSTATIN
     Indication: Acute leukaemia
     Dosage: 3 MILLIGRAM
     Route: 065
     Dates: start: 20230520, end: 20230523
  4. DECITABINE [Suspect]
     Active Substance: DECITABINE
     Indication: Acute leukaemia
     Dosage: 35 MILLIGRAM
     Route: 065
     Dates: start: 20230518, end: 20230524

REACTIONS (1)
  - Myelosuppression [Recovering/Resolving]

NARRATIVE: CASE EVENT DATE: 20230525
